FAERS Safety Report 20890676 (Version 2)
Quarter: 2022Q3

REPORT INFORMATION
  Report Type: Spontaneous
  Country: US (occurrence: US)
  Receive Date: 20220530
  Receipt Date: 20220705
  Transmission Date: 20221027
  Serious: Yes (Other)
  Sender: FDA-Public Use
  Company Number: US-BRISTOL-MYERS SQUIBB COMPANY-2022-046986

PATIENT
  Age: 68 Year
  Sex: Female

DRUGS (1)
  1. REVLIMID [Suspect]
     Active Substance: LENALIDOMIDE
     Indication: Plasma cell myeloma
     Dosage: 25MG OTHER ORAL
     Route: 048
     Dates: start: 202204

REACTIONS (5)
  - Neuropathy peripheral [Unknown]
  - Constipation [Unknown]
  - Myalgia [Unknown]
  - Arthralgia [Unknown]
  - Fluid retention [Unknown]

NARRATIVE: CASE EVENT DATE: 20220524
